FAERS Safety Report 8251340-X (Version None)
Quarter: 2012Q2

REPORT INFORMATION
  Report Type: 
  Country: None (occurrence: None)
  Receive Date: 20120402
  Receipt Date: 20120328
  Transmission Date: 20120825
  Serious: Yes (Hospitalization)
  Sender: FDA-Public Use
  Company Number: PL-GLAXOSMITHKLINE-B0657114A

PATIENT
  Sex: Female
  Weight: 86 kg

DRUGS (4)
  1. RADIOTHERAPY [Suspect]
     Indication: BREAST CANCER
     Dates: start: 20100315
  2. TRASTUZUMAB [Suspect]
     Indication: BREAST CANCER
     Dosage: 2MGK WEEKLY
     Route: 042
     Dates: start: 20091028, end: 20100114
  3. PACLITAXEL [Suspect]
     Indication: BREAST CANCER
     Dosage: 80MGM2 WEEKLY
     Route: 042
     Dates: start: 20091029, end: 20100114
  4. LAPATINIB [Suspect]
     Indication: BREAST CANCER
     Dosage: 1500MG PER DAY
     Route: 048
     Dates: start: 20100304

REACTIONS (2)
  - BRONCHIAL OBSTRUCTION [None]
  - BRONCHITIS [None]
